FAERS Safety Report 8588362-5 (Version None)
Quarter: 2012Q3

REPORT INFORMATION
  Report Type: 
  Country: None (occurrence: None)
  Receive Date: 20120813
  Receipt Date: 20120801
  Transmission Date: 20120928
  Serious: Yes (Hospitalization)
  Sender: FDA-Public Use
  Company Number: US-BAYER-2012-037915

PATIENT
  Age: 21 Year
  Sex: Female

DRUGS (15)
  1. LEVOXYL [Concomitant]
     Dosage: 200 MCG, DAILY
     Route: 048
     Dates: start: 20040528
  2. MULTI-VITAMINS [Concomitant]
     Dosage: 1 TAB, DAILY
     Route: 048
     Dates: start: 20040304
  3. OVCON-35 [Concomitant]
     Dosage: UNK
     Dates: start: 20040419
  4. VITAMIN B COMPLEX CAP [Concomitant]
     Dosage: UNK
     Dates: start: 20040304
  5. NAPROSYN [Concomitant]
     Dosage: 375 MG, BID
     Route: 048
     Dates: start: 20040528
  6. ATROVENT [Concomitant]
     Dosage: UNK
     Dates: start: 20040528
  7. PREDNISONE TAB [Concomitant]
     Dosage: 5 MG, 1 1/2 TABS EVERY MORNING
     Route: 048
     Dates: start: 20040304
  8. YASMIN [Suspect]
     Dosage: UNK
     Dates: start: 20030801, end: 20040501
  9. ZOLOFT [Concomitant]
     Dosage: 25 MG, DAILY
     Route: 048
     Dates: start: 20040304
  10. CARBATROL [Concomitant]
     Dosage: 300 MG, BID
     Route: 048
     Dates: start: 20040304
  11. LEVOXYL [Concomitant]
     Dosage: 175 MCG, DAILY
     Route: 048
     Dates: start: 20040304
  12. PROTONIX [Concomitant]
     Indication: GASTROOESOPHAGITIS
     Dosage: 40 MG, UNK
  13. ZOLOFT [Concomitant]
     Dosage: 50 MG,DAILY
     Route: 048
     Dates: start: 20040528
  14. CALCIUM [Concomitant]
     Dosage: UNK
     Dates: start: 20040304
  15. OVCON-35 [Concomitant]
     Dosage: UNK
     Dates: start: 20040404

REACTIONS (6)
  - INJURY [None]
  - FEAR OF DEATH [None]
  - PULMONARY EMBOLISM [None]
  - EMOTIONAL DISTRESS [None]
  - DEPRESSION [None]
  - NERVOUSNESS [None]
